FAERS Safety Report 6088071-0 (Version None)
Quarter: 2009Q1

REPORT INFORMATION
  Report Type: 
  Country: None (occurrence: None)
  Receive Date: 20090218
  Receipt Date: 20090204
  Transmission Date: 20090719
  Serious: Yes (Other)
  Sender: FDA-Public Use
  Company Number: 2009S1001579

PATIENT
  Age: 51 Year
  Sex: Female
  Weight: 70 kg

DRUGS (1)
  1. SERTRALIN DURA (SERTRALINE) [Suspect]
     Indication: DEPRESSION
     Dosage: 100 MG; ORAL
     Route: 048
     Dates: start: 20090108, end: 20090218

REACTIONS (3)
  - DRUG HYPERSENSITIVITY [None]
  - EYELID OEDEMA [None]
  - PRODUCT QUALITY ISSUE [None]
